FAERS Safety Report 10601312 (Version 1)
Quarter: 2014Q4

REPORT INFORMATION
  Report Type: Spontaneous
  Country: US (occurrence: None)
  Receive Date: 20141121
  Receipt Date: 20141121
  Transmission Date: 20150529
  Serious: Yes (Other)
  Sender: FDA-Public Use
  Company Number: None

PATIENT
  Age: 85 Year
  Sex: Male
  Weight: 92.99 kg

DRUGS (15)
  1. VENLAFAXINE [Suspect]
     Active Substance: VENLAFAXINE HYDROCHLORIDE
     Indication: ANXIETY
     Dosage: 100 AND INCREASED TO 150 MG?BID ?ORAL?ANXIETY AND STRESS. START DATE UNSURE- 2013 ESTIMATED
     Route: 048
     Dates: start: 2013, end: 20141120
  2. TOLTEORDINE TARTRATE [Concomitant]
  3. SUCRALFATE. [Concomitant]
     Active Substance: SUCRALFATE
  4. ATORVASTATIN [Concomitant]
     Active Substance: ATORVASTATIN
  5. VENLAFAXINE [Suspect]
     Active Substance: VENLAFAXINE HYDROCHLORIDE
     Indication: STRESS
     Dosage: 100 AND INCREASED TO 150 MG?BID ?ORAL?ANXIETY AND STRESS. START DATE UNSURE- 2013 ESTIMATED
     Route: 048
     Dates: start: 2013, end: 20141120
  6. LANTANOPROST SOLN [Concomitant]
  7. TIMOLOL MALEATE. [Concomitant]
     Active Substance: TIMOLOL MALEATE
  8. KETOCONALOLE CREAM [Concomitant]
  9. IPRATROPIUM NASAL [Concomitant]
  10. CITALOPRAM [Concomitant]
     Active Substance: CITALOPRAM HYDROBROMIDE
  11. RANITIDINE [Concomitant]
     Active Substance: RANITIDINE\RANITIDINE HYDROCHLORIDE
  12. GALANTAMINE [Concomitant]
     Active Substance: GALANTAMINE
  13. PROPRANOLOL [Concomitant]
     Active Substance: PROPRANOLOL\PROPRANOLOL HYDROCHLORIDE
  14. XANAX [Concomitant]
     Active Substance: ALPRAZOLAM
  15. VENLAFAXINE HCI [Concomitant]

REACTIONS (11)
  - Product contamination [None]
  - Rash [None]
  - Loss of consciousness [None]
  - Presyncope [None]
  - Hypotension [None]
  - Gait disturbance [None]
  - Product quality issue [None]
  - Dizziness [None]
  - Asthenia [None]
  - Pruritus [None]
  - Fall [None]
